FAERS Safety Report 11924110 (Version 1)
Quarter: 2016Q1

REPORT INFORMATION
  Report Type: Spontaneous
  Country: CN (occurrence: CN)
  Receive Date: 20160118
  Receipt Date: 20160118
  Transmission Date: 20160526
  Serious: Yes (Death)
  Sender: FDA-Public Use
  Company Number: CN-JNJFOC-20160109020

PATIENT
  Age: 88 Year
  Sex: Female

DRUGS (4)
  1. HERBAL NOS [Concomitant]
     Active Substance: HERBALS
     Route: 065
  2. RISPERDAL [Suspect]
     Active Substance: RISPERIDONE
     Indication: DEMENTIA ALZHEIMER^S TYPE
     Dosage: 1 TABLET IN THE MORNING AND 2 TABLETS IN THE EVENING
     Route: 048
  3. RISPERDAL [Suspect]
     Active Substance: RISPERIDONE
     Indication: DEMENTIA ALZHEIMER^S TYPE
     Dosage: 1 TABLET THRICE A DAY
     Route: 048
     Dates: start: 201511
  4. RISPERDAL [Suspect]
     Active Substance: RISPERIDONE
     Indication: DEMENTIA ALZHEIMER^S TYPE
     Dosage: HALF TABLET 3 TIMES A DAY
     Route: 048

REACTIONS (6)
  - Asthenia [Unknown]
  - Tremor [Unknown]
  - Urinary incontinence [Unknown]
  - Somnolence [Unknown]
  - Death [Fatal]
  - Abnormal faeces [Unknown]

NARRATIVE: CASE EVENT DATE: 20151210
